FAERS Safety Report 15113701 (Version 4)
Quarter: 2018Q3

REPORT INFORMATION
  Report Type: Report from Study
  Country: IT (occurrence: IT)
  Receive Date: 20180706
  Receipt Date: 20180728
  Transmission Date: 20181010
  Serious: Yes (Other)
  Sender: FDA-Public Use
  Company Number: IT-TEVA-2018-IT-921407

PATIENT
  Age: 56 Year
  Sex: Female
  Weight: 62 kg

DRUGS (5)
  1. YONDELIS [Suspect]
     Active Substance: TRABECTEDIN
     Route: 042
     Dates: start: 20180216, end: 20180216
  2. DOXORUBICIN HYDROCHLORIDE. [Suspect]
     Active Substance: DOXORUBICIN HYDROCHLORIDE
     Indication: OVARIAN CANCER RECURRENT
     Route: 042
     Dates: start: 20180216, end: 20180216
  3. DOXORUBICIN HYDROCHLORIDE. [Suspect]
     Active Substance: DOXORUBICIN HYDROCHLORIDE
     Indication: OVARIAN CANCER
     Route: 042
     Dates: start: 20180412, end: 20180412
  4. YONDELIS [Suspect]
     Active Substance: TRABECTEDIN
     Route: 042
     Dates: start: 20180504, end: 20180504
  5. YONDELIS [Suspect]
     Active Substance: TRABECTEDIN
     Indication: OVARIAN CANCER RECURRENT
     Route: 042
     Dates: start: 20180216, end: 20180216

REACTIONS (2)
  - Thrombocytopenia [Not Recovered/Not Resolved]
  - Pancytopenia [Recovered/Resolved]

NARRATIVE: CASE EVENT DATE: 20180308
